FAERS Safety Report 7537472-X (Version None)
Quarter: 2011Q2

REPORT INFORMATION
  Report Type: 
  Country: None (occurrence: None)
  Receive Date: 20110609
  Receipt Date: 20110601
  Transmission Date: 20111010
  Serious: Yes (Other)
  Sender: FDA-Public Use
  Company Number: PHHY2011US47816

PATIENT
  Sex: Female

DRUGS (1)
  1. ILARIS [Suspect]
     Indication: URTICARIA
     Dosage: 150 MG, UNK
     Route: 058
     Dates: start: 20070601

REACTIONS (1)
  - URINARY TRACT INFECTION [None]
